FAERS Safety Report 11692323 (Version 1)
Quarter: 2015Q4

REPORT INFORMATION
  Report Type: Spontaneous
  Country: US (occurrence: None)
  Receive Date: 20151102
  Receipt Date: 20151102
  Transmission Date: 20160304
  Serious: Yes (Hospitalization)
  Sender: FDA-Public Use
  Company Number: None

PATIENT
  Age: 59 Year
  Sex: Male

DRUGS (1)
  1. HUMIRA [Suspect]
     Active Substance: ADALIMUMAB
     Dosage: 2 PENS
     Route: 058
     Dates: start: 201312, end: 201411

REACTIONS (2)
  - Hepatic vein thrombosis [None]
  - Therapy cessation [None]

NARRATIVE: CASE EVENT DATE: 20140901
